FAERS Safety Report 9400770 (Version 1)
Quarter: 2013Q3

REPORT INFORMATION
  Report Type: Spontaneous
  Country: US (occurrence: None)
  Receive Date: 20130712
  Receipt Date: 20130712
  Transmission Date: 20140515
  Serious: Yes (Disabling)
  Sender: FDA-Public Use
  Company Number: None

PATIENT
  Age: 85 Year
  Sex: Female
  Weight: 38.56 kg

DRUGS (1)
  1. DIOVAN [Suspect]
     Indication: HYPERTENSION
     Route: 048
     Dates: start: 201105, end: 201106

REACTIONS (6)
  - Vertigo [None]
  - Balance disorder [None]
  - Feeling abnormal [None]
  - Bradyphrenia [None]
  - Quality of life decreased [None]
  - Decreased activity [None]
